FAERS Safety Report 6495139-3 (Version None)
Quarter: 2009Q4

REPORT INFORMATION
  Report Type: 
  Country: None (occurrence: None)
  Receive Date: 20091214
  Receipt Date: 20090506
  Transmission Date: 20100525
  Serious: No
  Sender: FDA-Public Use
  Company Number: US-BRISTOL-MYERS SQUIBB COMPANY-14613533

PATIENT
  Age: 63 Year

DRUGS (2)
  1. ABILIFY [Suspect]
  2. ARICEPT [Suspect]

REACTIONS (2)
  - DROOLING [None]
  - MUSCULAR WEAKNESS [None]
